FAERS Safety Report 9871367 (Version 3)
Quarter: 2014Q3

REPORT INFORMATION
  Report Type: Spontaneous
  Country: GB (occurrence: GB)
  Receive Date: 20140205
  Receipt Date: 20140826
  Transmission Date: 20150326
  Serious: Yes (Death, Other)
  Sender: FDA-Public Use
  Company Number: PHFR2014GB001244

PATIENT
  Age: 58 Year
  Sex: Female
  Weight: 92 kg

DRUGS (3)
  1. CLOZARIL [Suspect]
     Active Substance: CLOZAPINE
     Indication: SCHIZOPHRENIA, PARANOID TYPE
     Dosage: UKN
     Route: 048
     Dates: start: 20120220
  2. PARACETAMOL [Concomitant]
     Active Substance: ACETAMINOPHEN
     Dosage: UKN
  3. DESIPRAMINE [Concomitant]
     Active Substance: DESIPRAMINE
     Dosage: UKN

REACTIONS (8)
  - Atelectasis [Recovered/Resolved]
  - Cough [Recovering/Resolving]
  - Gastrooesophageal reflux disease [Recovering/Resolving]
  - Intertrigo [Unknown]
  - Myocardial ischaemia [Fatal]
  - Arteriosclerosis coronary artery [Fatal]
  - Pulmonary oedema [Fatal]
  - Wheezing [Unknown]

NARRATIVE: CASE EVENT DATE: 20140130
